FAERS Safety Report 6040009-8 (Version None)
Quarter: 2009Q1

REPORT INFORMATION
  Report Type: 
  Country: None (occurrence: None)
  Receive Date: 20090116
  Receipt Date: 20071114
  Transmission Date: 20090719
  Serious: No
  Sender: FDA-Public Use
  Company Number: US-BRISTOL-MYERS SQUIBB COMPANY-13983325

PATIENT
  Sex: Male
  Weight: 88 kg

DRUGS (7)
  1. ABILIFY [Suspect]
     Indication: BIPOLAR DISORDER
     Dosage: AT SOME POINT DOSE INCREASED TO 20MG IN THE A.M.,10MG AT NIGHT. 10DAYS AGO CHANGED TO 30MG AT NIGHT
     Route: 048
     Dates: start: 20050101
  2. LIPITOR [Concomitant]
  3. KLONOPIN [Concomitant]
  4. LISINOPRIL [Concomitant]
  5. LAMICTAL [Concomitant]
  6. LANTUS [Concomitant]
  7. HUMALOG [Concomitant]

REACTIONS (3)
  - BALANCE DISORDER [None]
  - CONSTIPATION [None]
  - FLATULENCE [None]
